FAERS Safety Report 15343908 (Version 1)
Quarter: 2018Q3

REPORT INFORMATION
  Report Type: Spontaneous
  Country: DE (occurrence: DE)
  Receive Date: 20180903
  Receipt Date: 20180903
  Transmission Date: 20181010
  Serious: Yes (Hospitalization, Other)
  Sender: FDA-Public Use
  Company Number: PHHY2018DE087398

PATIENT
  Sex: Female

DRUGS (2)
  1. MTX SANDOZ [Suspect]
     Active Substance: METHOTREXATE SODIUM
     Indication: RHEUMATOID ARTHRITIS
     Dosage: 10 MG, (WEEKLY) QW
     Route: 048
     Dates: start: 20160330
  2. CERTOLIZUMAB PEGOL RECOMBINANT [Suspect]
     Active Substance: CERTOLIZUMAB PEGOL
     Indication: RHEUMATOID ARTHRITIS
     Dosage: 200 MG, (EVERY 2 WEEKS) Q2W
     Route: 058
     Dates: start: 201608

REACTIONS (3)
  - Respiratory tract infection [Unknown]
  - Thoracic vertebral fracture [Recovered/Resolved]
  - Fall [Unknown]

NARRATIVE: CASE EVENT DATE: 20170805
